FAERS Safety Report 16325756 (Version 1)
Quarter: 2019Q2

REPORT INFORMATION
  Report Type: Spontaneous
  Country: US (occurrence: US)
  Receive Date: 20190517
  Receipt Date: 20190517
  Transmission Date: 20190711
  Serious: No
  Sender: FDA-Public Use
  Company Number: US-COLLEGIUM PHARMACEUTICAL, INC.-2019CGM00102

PATIENT
  Age: 57 Year
  Sex: Male
  Weight: 92.52 kg

DRUGS (4)
  1. XTAMPZA ER [Suspect]
     Active Substance: OXYCODONE
     Indication: BACK PAIN
     Dosage: 36 MG EVERY 12 HOURS
     Route: 048
     Dates: start: 20190219
  2. OXYCODONE IR [Concomitant]
     Active Substance: OXYCODONE
  3. XTAMPZA ER [Suspect]
     Active Substance: OXYCODONE
     Indication: PAIN
  4. XTAMPZA ER [Suspect]
     Active Substance: OXYCODONE
     Indication: RADICULOPATHY

REACTIONS (3)
  - Vomiting [Unknown]
  - Nausea [Unknown]
  - Product substitution issue [Not Recovered/Not Resolved]

NARRATIVE: CASE EVENT DATE: 201902
